FAERS Safety Report 6897397-X (Version None)
Quarter: 2010Q3

REPORT INFORMATION
  Report Type: 
  Country: None (occurrence: None)
  Receive Date: 20100802
  Receipt Date: 20070608
  Transmission Date: 20110219
  Serious: No
  Sender: FDA-Public Use
  Company Number: US-PFIZER INC-2007030453

PATIENT
  Sex: Female
  Weight: 45.4 kg

DRUGS (1)
  1. LYRICA [Suspect]
     Dates: start: 20060101

REACTIONS (4)
  - CONSTIPATION [None]
  - DRY MOUTH [None]
  - DRY SKIN [None]
  - HAIR TEXTURE ABNORMAL [None]
